FAERS Safety Report 7572685-2 (Version None)
Quarter: 2011Q2

REPORT INFORMATION
  Report Type: 
  Country: None (occurrence: None)
  Receive Date: 20110627
  Receipt Date: 20110617
  Transmission Date: 20111010
  Serious: No
  Sender: FDA-Public Use
  Company Number: US-BIOGENIDEC-2011BI022672

PATIENT
  Sex: Female

DRUGS (3)
  1. AVONEX [Suspect]
     Indication: MULTIPLE SCLEROSIS
     Route: 030
  2. AVONEX [Suspect]
     Route: 030
     Dates: start: 19990101
  3. ALLERGY MEDICATION (NOS) [Concomitant]

REACTIONS (8)
  - OSTEOARTHRITIS [None]
  - SLEEP DISORDER [None]
  - ROAD TRAFFIC ACCIDENT [None]
  - PAIN [None]
  - BACK DISORDER [None]
  - INTERVERTEBRAL DISC DISORDER [None]
  - INTERVERTEBRAL DISC DEGENERATION [None]
  - CHILLS [None]
